FAERS Safety Report 4428304-7 (Version None)
Quarter: 2004Q3

REPORT INFORMATION
  Report Type: 
  Country: None (occurrence: None)
  Receive Date: 20040818
  Receipt Date: 20040806
  Transmission Date: 20050211
  Serious: Yes (Other)
  Sender: FDA-Public Use
  Company Number: DE-JNJFOC-20040802019

PATIENT
  Age: 63 Year
  Sex: Male

DRUGS (3)
  1. INFLIXIMAB [Suspect]
     Indication: CROHN'S DISEASE
     Route: 042
  2. METHOTREXATE [Concomitant]
  3. CORTICOID [Concomitant]
     Dosage: 10MG - 60MG AS REQUIRED

REACTIONS (1)
  - BRONCHIAL CARCINOMA [None]
